FAERS Safety Report 8558072-9 (Version None)
Quarter: 2012Q3

REPORT INFORMATION
  Report Type: 
  Country: None (occurrence: None)
  Receive Date: 20120801
  Receipt Date: 20120725
  Transmission Date: 20120928
  Serious: Yes (Hospitalization, Disabling, Other)
  Sender: FDA-Public Use
  Company Number: US-009507513-1103USA00954

PATIENT

DRUGS (16)
  1. POTASSIUM GLUCONATE TAB [Concomitant]
     Dosage: 550 MG, QD
     Dates: start: 20000101
  2. CALCIUM MAGNESIUM ZINC [Concomitant]
     Dosage: 1000 MG, BID
     Dates: start: 20000101
  3. FOSAMAX [Suspect]
     Indication: OSTEOPENIA
     Dosage: 10 MG, UNK
     Route: 048
     Dates: start: 20000802
  4. SUMATRIPTAN SUCCINATE (IMITREX) [Concomitant]
  5. FOSAMAX [Suspect]
     Indication: OSTEOPOROSIS
     Dosage: 70 MG, QW
     Route: 048
     Dates: end: 20080714
  6. FOSAMAX [Suspect]
     Dosage: 70 MG, QW
     Route: 048
     Dates: start: 20080714, end: 20100809
  7. FOSAMAX [Suspect]
  8. VITAMIN B (UNSPECIFIED) [Concomitant]
     Dosage: 100 MG, QD
     Dates: start: 20000101
  9. SELENIUM (UNSPECIFIED) [Concomitant]
     Dosage: 200 MG, QD
     Dates: start: 20000101
  10. ASCORBIC ACID [Concomitant]
     Dosage: 500 MG, QD
     Dates: start: 20000101
  11. LECITHIN [Concomitant]
     Dosage: 1200 MG, QD
     Dates: start: 20000101
  12. VITAMIN D (UNSPECIFIED) [Concomitant]
     Dosage: 1000 MG, BID
     Dates: start: 20000101
  13. MAXALT [Concomitant]
  14. VITAMIN E [Concomitant]
     Dosage: 400 MG, QD
     Dates: start: 20000101
  15. MK-9278 [Concomitant]
     Dosage: UNK UNK, QD
     Dates: start: 20000101
  16. OMEGA-3 MARINE TRIGLYCERIDES [Concomitant]
     Dosage: 1000 MG, QD
     Dates: start: 20000101

REACTIONS (15)
  - OSTEOPOROSIS [None]
  - ROAD TRAFFIC ACCIDENT [None]
  - NERVOUSNESS [None]
  - HIGH DENSITY LIPOPROTEIN INCREASED [None]
  - BURSITIS [None]
  - NECK PAIN [None]
  - CHEST DISCOMFORT [None]
  - LOW TURNOVER OSTEOPATHY [None]
  - LIGAMENT SPRAIN [None]
  - SINUS CONGESTION [None]
  - FEMUR FRACTURE [None]
  - STRESS FRACTURE [None]
  - OROPHARYNGEAL PAIN [None]
  - BACK PAIN [None]
  - HEADACHE [None]
